FAERS Safety Report 10877180 (Version 1)
Quarter: 2015Q1

REPORT INFORMATION
  Report Type: Spontaneous
  Country: US (occurrence: None)
  Receive Date: 20150224
  Receipt Date: 20150224
  Transmission Date: 20150721
  Serious: Yes (Hospitalization)
  Sender: FDA-Public Use
  Company Number: FK201500818

PATIENT
  Age: 48 Year
  Sex: Female

DRUGS (4)
  1. LITHIUM [Suspect]
     Active Substance: LITHIUM CARBONATE
     Indication: MANIA
     Route: 048
  2. LACTULOSE (LACTULOSE) [Suspect]
     Active Substance: LACTULOSE
     Indication: CONSTIPATION
     Dosage: 5 IN 1 DAY
  3. QUETIAPINE (QUETIPAINE) [Concomitant]
  4. BENAZEPRIL [Concomitant]
     Active Substance: BENAZEPRIL\BENAZEPRIL HYDROCHLORIDE

REACTIONS (7)
  - Toxicity to various agents [None]
  - Antipsychotic drug level above therapeutic [None]
  - Constipation [None]
  - Tremor [None]
  - Hypertension [None]
  - Syncope [None]
  - Somnolence [None]
